FAERS Safety Report 8802900 (Version 2)
Quarter: 2012Q4

REPORT INFORMATION
  Report Type: 
  Country: AU (occurrence: AU)
  Receive Date: 20120922
  Receipt Date: 20121017
  Transmission Date: 20130627
  Serious: Yes (Death)
  Sender: FDA-Public Use
  Company Number: AU-B.I. PHARMACEUTICALS,INC./RIDGEFIELD-2012-AU-01628AU

PATIENT
  Age: 80 Year
  Sex: Male
  Weight: 80 kg

DRUGS (4)
  1. PRADAXA [Suspect]
     Indication: CEREBROVASCULAR ACCIDENT PROPHYLAXIS
     Dosage: 220 mg
     Dates: start: 20110606
  2. PRADAXA [Suspect]
     Indication: ATRIAL FIBRILLATION
  3. DILATREND [Concomitant]
  4. LASIX [Concomitant]

REACTIONS (2)
  - Myocardial infarction [Fatal]
  - Death [Fatal]
